FAERS Safety Report 14185614 (Version 1)
Quarter: 2017Q4

REPORT INFORMATION
  Report Type: Spontaneous
  Country: US (occurrence: US)
  Receive Date: 20171113
  Receipt Date: 20171113
  Transmission Date: 20180321
  Serious: Yes (Other)
  Sender: FDA-Public Use
  Company Number: US-CIPLA LTD.-2017US19845

PATIENT

DRUGS (3)
  1. LEVOFLOXACIN. [Suspect]
     Active Substance: LEVOFLOXACIN
     Indication: PNEUMONIA LEGIONELLA
     Dosage: UNK
     Route: 065
  2. AZITHROMYCIN ANHYDROUS. [Suspect]
     Active Substance: AZITHROMYCIN ANHYDROUS
     Indication: PNEUMONIA LEGIONELLA
     Dosage: UNK
     Route: 065
  3. TIGECYCLINE. [Suspect]
     Active Substance: TIGECYCLINE
     Dosage: UNK
     Route: 065

REACTIONS (4)
  - Pyrexia [Unknown]
  - Leukocytosis [Unknown]
  - Respiratory distress [Unknown]
  - Septic shock [Unknown]
